FAERS Safety Report 6788673-X (Version None)
Quarter: 2010Q2

REPORT INFORMATION
  Report Type: 
  Country: None (occurrence: None)
  Receive Date: 20100623
  Receipt Date: 20080414
  Transmission Date: 20101027
  Serious: Yes (Other)
  Sender: FDA-Public Use
  Company Number: US-PFIZER INC-2008033982

PATIENT
  Sex: Female

DRUGS (3)
  1. GEODON [Suspect]
  2. LEXAPRO [Concomitant]
  3. PROZAC [Concomitant]

REACTIONS (2)
  - BLOOD PROLACTIN INCREASED [None]
  - GYNAECOMASTIA [None]
